FAERS Safety Report 13167648 (Version 1)
Quarter: 2017Q1

REPORT INFORMATION
  Report Type: Spontaneous
  Country: US (occurrence: US)
  Receive Date: 20170131
  Receipt Date: 20170131
  Transmission Date: 20170428
  Serious: No
  Sender: FDA-Public Use
  Company Number: US-PFIZER INC-2017038949

PATIENT
  Sex: Female

DRUGS (1)
  1. EXEMESTANE. [Suspect]
     Active Substance: EXEMESTANE
     Indication: BREAST CANCER
     Dosage: 25 MG, 1X/DAY

REACTIONS (5)
  - Lichen planus [Unknown]
  - Tongue disorder [Unknown]
  - Oral disorder [Unknown]
  - Dysgeusia [Recovered/Resolved]
  - Weight decreased [Unknown]
